FAERS Safety Report 4835940-2 (Version None)
Quarter: 2005Q4

REPORT INFORMATION
  Report Type: 
  Country: None (occurrence: None)
  Receive Date: 20051123
  Receipt Date: 20051109
  Transmission Date: 20060501
  Serious: Yes (Other)
  Sender: FDA-Public Use
  Company Number: US-KINGPHARMUSA00001-K200501457

PATIENT
  Age: 74 Year
  Sex: Female

DRUGS (10)
  1. ALTACE [Suspect]
     Indication: HYPERTENSION
     Dosage: 5 MG, QD
     Route: 048
     Dates: start: 20050609, end: 20050916
  2. ALTACE [Suspect]
     Dosage: 5 MG, QD
     Route: 048
     Dates: start: 20050609, end: 20050916
  3. HYDROCHLOROTHIAZIDE [Suspect]
     Indication: HYPERTENSION
     Dosage: 25 MG, QD
     Route: 048
     Dates: start: 20050609, end: 20050916
  4. PRAVASTATIN [Concomitant]
  5. BETAMETHYLDIGOXIN [Concomitant]
  6. DILTIAZEM HCL [Concomitant]
  7. NITROGLYCERIN [Concomitant]
     Dosage: 5 MG, UNK
     Route: 062
  8. ASPIRIN [Concomitant]
  9. INSULIN HUMAN [Concomitant]
  10. ISOPHANE INSULIN [Concomitant]

REACTIONS (2)
  - RENAL ARTERY STENOSIS [None]
  - RENAL FAILURE [None]
